FAERS Safety Report 9123506 (Version 2)
Quarter: 2013Q1

REPORT INFORMATION
  Report Type: Spontaneous
  Country: US (occurrence: US)
  Receive Date: 20130227
  Receipt Date: 20130304
  Transmission Date: 20140127
  Serious: No
  Sender: FDA-Public Use
  Company Number: US-PFIZER INC-2013069461

PATIENT
  Age: 58 Year
  Sex: Male

DRUGS (3)
  1. LOSARTAN POTASSIUM [Suspect]
     Indication: HYPERTENSION
     Dosage: 50MG DAILY
     Route: 065
  2. SERTRALINE HCL [Suspect]
     Dosage: 50MG DAILY
     Route: 065
  3. DILTIAZEM HCL [Suspect]
     Indication: HYPERTENSION
     Dosage: 300MG DAILY
     Route: 065

REACTIONS (2)
  - Urticaria [Not Recovered/Not Resolved]
  - Pruritus [Not Recovered/Not Resolved]
